FAERS Safety Report 5398769-5 (Version None)
Quarter: 2007Q3

REPORT INFORMATION
  Report Type: 
  Country: None (occurrence: None)
  Receive Date: 20070726
  Receipt Date: 20061228
  Transmission Date: 20080115
  Serious: No
  Sender: FDA-Public Use
  Company Number: US-AMGEN-US204933

PATIENT
  Sex: Female

DRUGS (14)
  1. ARANESP [Suspect]
     Indication: RENAL FAILURE CHRONIC
     Route: 065
     Dates: start: 20061001
  2. PROCRIT [Suspect]
     Indication: RENAL FAILURE CHRONIC
     Route: 065
     Dates: end: 20061018
  3. CARTIA XT [Concomitant]
     Route: 065
  4. CLONIDINE [Concomitant]
     Route: 065
  5. COLCHICINE [Concomitant]
     Route: 065
  6. SODIUM BICARBONATE [Concomitant]
     Route: 065
  7. NEXIUM [Concomitant]
     Route: 065
  8. PRAVACHOL [Concomitant]
     Route: 065
  9. TERAZOSIN HCL [Concomitant]
     Route: 065
  10. METOPROLOL SUCCINATE [Concomitant]
     Route: 065
  11. MICARDIS [Concomitant]
     Route: 065
  12. ECOTRIN [Concomitant]
     Route: 065
  13. CADUET [Concomitant]
     Route: 065
  14. ATACAND [Concomitant]
     Route: 065

REACTIONS (1)
  - PRURITUS [None]
